FAERS Safety Report 10308902 (Version 1)
Quarter: 2014Q3

REPORT INFORMATION
  Report Type: Spontaneous
  Country: US (occurrence: None)
  Receive Date: 20140714
  Receipt Date: 20140714
  Transmission Date: 20150326
  Serious: Yes (Death)
  Sender: FDA-Public Use
  Company Number: INS201407-000122

PATIENT
  Sex: Female
  Weight: 65.77 kg

DRUGS (3)
  1. HYDROMORPHONE (HYDROMORPHONE) (HYDROMORPHONE) [Concomitant]
  2. METHADONE [Concomitant]
     Active Substance: METHADONE HYDROCHLORIDE
  3. SUBSYS [Suspect]
     Active Substance: FENTANYL
     Indication: BREAST CANCER
     Dates: start: 20130625

REACTIONS (1)
  - Death [None]
